FAERS Safety Report 13143810 (Version 1)
Quarter: 2017Q1

REPORT INFORMATION
  Report Type: Spontaneous
  Country: SE (occurrence: SE)
  Receive Date: 20170124
  Receipt Date: 20170124
  Transmission Date: 20170428
  Serious: Yes (Other)
  Sender: FDA-Public Use
  Company Number: SE-JNJFOC-20170116548

PATIENT

DRUGS (3)
  1. REMICADE [Suspect]
     Active Substance: INFLIXIMAB
     Indication: COLITIS ULCERATIVE
     Route: 042
  2. MERCAPTOPURINE. [Concomitant]
     Active Substance: MERCAPTOPURINE
     Route: 065
  3. AZATHIOPRINE. [Suspect]
     Active Substance: AZATHIOPRINE
     Indication: PRODUCT USED FOR UNKNOWN INDICATION
     Route: 065

REACTIONS (16)
  - Colectomy [Unknown]
  - Myelitis [Unknown]
  - Rash [Unknown]
  - Psoriasis [Unknown]
  - Infusion related reaction [Unknown]
  - Pneumonitis [Unknown]
  - Dysplasia [Unknown]
  - Legionella infection [Unknown]
  - Disseminated tuberculosis [Unknown]
  - Myelofibrosis [Unknown]
  - Drug ineffective [Unknown]
  - Neuralgia [Unknown]
  - Lupus-like syndrome [Unknown]
  - Meningitis herpes [Unknown]
  - Pyelonephritis [Unknown]
  - Pulmonary embolism [Unknown]
